FAERS Safety Report 23296352 (Version 1)
Quarter: 2023Q4

REPORT INFORMATION
  Report Type: Spontaneous
  Country: CN (occurrence: CN)
  Receive Date: 20231214
  Receipt Date: 20231214
  Transmission Date: 20240110
  Serious: Yes (Hospitalization)
  Sender: FDA-Public Use
  Company Number: CN-SHANGHAI JUNSHI BIOSCIENCES CO., LTD.-CN2023008795

PATIENT

DRUGS (3)
  1. TORIPALIMAB [Suspect]
     Active Substance: TORIPALIMAB
     Indication: Lip and/or oral cavity cancer
     Dosage: 240 MG (D1)
     Route: 041
     Dates: start: 20230722, end: 20230728
  2. CISPLATIN [Suspect]
     Active Substance: CISPLATIN
     Indication: Lip and/or oral cavity cancer
     Dosage: 35 MG, D1-D3, QD
     Route: 041
     Dates: start: 20230722, end: 20230728
  3. PACLITAXEL [Suspect]
     Active Substance: PACLITAXEL
     Indication: Lip and/or oral cavity cancer
     Dosage: 180 MG (D1)
     Route: 041
     Dates: start: 20230722, end: 20230728

REACTIONS (2)
  - Myelosuppression [Recovering/Resolving]
  - Off label use [Unknown]

NARRATIVE: CASE EVENT DATE: 20230722
